FAERS Safety Report 7096093-6 (Version None)
Quarter: 2010Q4

REPORT INFORMATION
  Report Type: 
  Country: None (occurrence: None)
  Receive Date: 20101111
  Receipt Date: 20101103
  Transmission Date: 20110411
  Serious: Yes (Hospitalization)
  Sender: FDA-Public Use
  Company Number: US-ROCHE-674245

PATIENT
  Sex: Female
  Weight: 73 kg

DRUGS (29)
  1. BEVACIZUMAB [Suspect]
     Indication: BREAST CANCER
     Dosage: FORM:VIAL, LAST DOSE PRIOR TO SAE: 03 NOVEMBER 2009. DOSE LEVEL: 15MG/KG, PERMANENTLY DISCONTINUED.
     Route: 042
     Dates: start: 20090805, end: 20091130
  2. TRASTUZUMAB [Suspect]
     Indication: BREAST CANCER
     Dosage: FORM REPORTED AS VIAL, LAST DOSE PRIOR TO SAE: 05 AUGUST 2009.DOSE LEVEL: 8 MG/KG.
     Route: 042
     Dates: start: 20090805
  3. TRASTUZUMAB [Suspect]
     Dosage: FORM:VIAL.LAST DOSE PRIOR TO SAE: 03 NOVEMBER 2009.DOSE LEVEL: 6 MG/KG, PERMANENTLY DISCONTINUED.
     Route: 042
     Dates: end: 20091130
  4. CARBOPLATIN [Suspect]
     Indication: BREAST CANCER
     Dosage: FORM REPORTED AS VIAL, LAST DOSE PRIOR TO SAE: 05 AUGUST 2009.DOSE LEVEL: 6 AUC.
     Route: 042
     Dates: start: 20090805
  5. CARBOPLATIN [Suspect]
     Dosage: DOSE LEVEL: 4 AUC.DOSE REDUCED AND PERMANENTLY DISCONTINUED.
     Route: 042
     Dates: start: 20090908, end: 20090930
  6. DOCETAXEL [Suspect]
     Indication: BREAST CANCER
     Dosage: FORM REPORTED AS VIAL, LAST DOSE PRIOR TO SAE: 05 AUGUST 2009.DOSE LEVEL: 75 MG/M2
     Route: 042
     Dates: start: 20090805
  7. DOCETAXEL [Suspect]
     Dosage: DOSE LEVEL: 50MG/M2. DOSE REDUCED AND PERMANENTLY DISCONTINUED
     Route: 042
     Dates: start: 20090908, end: 20090930
  8. VASERETIC [Concomitant]
     Dates: start: 20050801
  9. VASERETIC [Concomitant]
     Dates: start: 20090924
  10. ASPIRIN [Concomitant]
     Route: 048
     Dates: start: 20070801
  11. COMPAZINE [Concomitant]
  12. TARKA [Concomitant]
     Dates: start: 20050801
  13. DECADRON [Concomitant]
     Dosage: DRUG NAME: DECADRON (CHEMO PRE-MED)
     Dates: start: 20090804
  14. DECADRON [Concomitant]
  15. GLUMETZA [Concomitant]
     Route: 048
     Dates: start: 20060901
  16. GLUMETZA [Concomitant]
     Route: 048
  17. NOVOLOG MIX 70/30 [Concomitant]
     Dosage: DRUG NAME: INSULINE NOVOLOG MIX 70:30,TDD REPORTED AS PRN.
     Dates: start: 20060901
  18. LIPITOR [Concomitant]
     Route: 048
     Dates: start: 20080801
  19. LIPITOR [Concomitant]
     Route: 048
     Dates: start: 20090901, end: 20091130
  20. MAXIDEX [Concomitant]
  21. MAGIC MOUTHWASH (DIPHENHYDRAMINE/MAALOX/NYSTATIN) [Concomitant]
     Dates: start: 20090916
  22. IMODIUM [Concomitant]
     Dates: start: 20090806
  23. ARIMIDEX [Concomitant]
     Dates: start: 20091001, end: 20091130
  24. VERAPAMIL [Concomitant]
     Dates: start: 20050801
  25. LASIX [Concomitant]
     Dates: start: 20091124
  26. MAGNESIUM [Concomitant]
     Dates: start: 20090914
  27. SANDOSTATIN [Concomitant]
     Dates: start: 20090917
  28. ZOFRAN [Concomitant]
     Dates: start: 20091124
  29. K-DUR [Concomitant]
     Dates: start: 20091124

REACTIONS (7)
  - AORTIC VALVE INCOMPETENCE [None]
  - AORTIC VALVE SCLEROSIS [None]
  - DIASTOLIC DYSFUNCTION [None]
  - FAILURE TO THRIVE [None]
  - GLOMERULONEPHRITIS MEMBRANOUS [None]
  - GLOMERULOSCLEROSIS [None]
  - MITRAL VALVE INCOMPETENCE [None]
